FAERS Safety Report 18594862 (Version 1)
Quarter: 2020Q4

REPORT INFORMATION
  Report Type: Other
  Country: US (occurrence: US)
  Receive Date: 20201209
  Receipt Date: 20201209
  Transmission Date: 20210114
  Serious: Yes (Other)
  Sender: FDA-Public Use
  Company Number: US-ROCHE-2725228

PATIENT
  Sex: Female
  Weight: 53.6 kg

DRUGS (2)
  1. XELODA [Suspect]
     Active Substance: CAPECITABINE
     Dosage: TAKE 3 TABLET(S) BY MOUTH BID 14 DAYS ON 7 DAYS OFF EVERY 21 DAYS
     Route: 048
  2. XELODA [Suspect]
     Active Substance: CAPECITABINE
     Indication: NEOPLASM MALIGNANT
     Dosage: TAKE 2 TABLET(S) BY MOUTH 14 DAYS ON AND 07 DAYS OFF
     Route: 048
     Dates: start: 20200910

REACTIONS (1)
  - Hepatic neoplasm [Recovering/Resolving]
